FAERS Safety Report 4398827-8 (Version None)
Quarter: 2004Q3

REPORT INFORMATION
  Report Type: 
  Country: None (occurrence: None)
  Receive Date: 20040712
  Receipt Date: 20040625
  Transmission Date: 20050211
  Serious: Yes (Other)
  Sender: FDA-Public Use
  Company Number: US-SHR-04-022756

PATIENT
  Age: 32 Year
  Sex: Female
  Weight: 74.8 kg

DRUGS (1)
  1. ULTRAVIST 300 [Suspect]
     Indication: ANGIOGRAM PULMONARY
     Dosage: 100 ML, 1 DOSE, 4ML/SEC, INTRAVENOUS
     Route: 042
     Dates: start: 20040316, end: 20040316

REACTIONS (13)
  - ANXIETY [None]
  - CONTRAST MEDIA REACTION [None]
  - CYANOSIS [None]
  - DYSGEUSIA [None]
  - DYSPNOEA [None]
  - HOT FLUSH [None]
  - HYPERHIDROSIS [None]
  - NAUSEA [None]
  - PULMONARY FIBROSIS [None]
  - RESPIRATORY RATE INCREASED [None]
  - TACHYCARDIA [None]
  - VOMITING [None]
  - WHEEZING [None]
